FAERS Safety Report 13295280 (Version 1)
Quarter: 2017Q1

REPORT INFORMATION
  Report Type: Spontaneous
  Country: US (occurrence: US)
  Receive Date: 20170303
  Receipt Date: 20170303
  Transmission Date: 20170428
  Serious: No
  Sender: FDA-Public Use
  Company Number: US-VERTEX PHARMACEUTICALS-2017-001116

PATIENT
  Sex: Female
  Weight: 52 kg

DRUGS (4)
  1. ORKAMBI [Suspect]
     Active Substance: IVACAFTOR\LUMACAFTOR
     Indication: CYSTIC FIBROSIS
     Dosage: BID (TOTAL DAILY DOSE 800MG/500MG)
     Route: 048
     Dates: start: 201507
  2. PULMOZYME [Concomitant]
     Active Substance: DORNASE ALFA
     Dosage: ONCE A DAY
  3. ALBUTEROL. [Concomitant]
     Active Substance: ALBUTEROL
     Dosage: 2 PUFFS, BID
  4. CREON [Concomitant]
     Active Substance: PANCRELIPASE AMYLASE\PANCRELIPASE LIPASE\PANCRELIPASE PROTEASE
     Dosage: WITH EACH MEAL

REACTIONS (3)
  - Nausea [Not Recovered/Not Resolved]
  - Headache [Recovering/Resolving]
  - Nasopharyngitis [Unknown]
